FAERS Safety Report 11785032 (Version 1)
Quarter: 2015Q4

REPORT INFORMATION
  Report Type: Spontaneous
  Country: IT (occurrence: IT)
  Receive Date: 20151130
  Receipt Date: 20151130
  Transmission Date: 20160305
  Serious: Yes (Other)
  Sender: FDA-Public Use
  Company Number: IT-SUN PHARMACEUTICAL INDUSTRIES LTD-2015RR-106714

PATIENT

DRUGS (1)
  1. OLANZAPINE. [Suspect]
     Active Substance: OLANZAPINE
     Indication: SCHIZOPHRENIA
     Dosage: 2 DF, DAILY
     Route: 048
     Dates: start: 20150810, end: 20150916

REACTIONS (2)
  - No therapeutic response [Recovered/Resolved]
  - Aggression [Recovered/Resolved]

NARRATIVE: CASE EVENT DATE: 20150916
